FAERS Safety Report 8282609 (Version 4)
Quarter: 2013Q1

REPORT INFORMATION
  Report Type: Spontaneous
  Country: US (occurrence: US)
  Receive Date: 20111209
  Receipt Date: 20130211
  Transmission Date: 20140127
  Serious: Yes (Hospitalization, Other)
  Sender: FDA-Public Use
  Company Number: US-AMGEN-USASP2011064294

PATIENT
  Age: 58 Year
  Sex: Male

DRUGS (4)
  1. ENBREL [Suspect]
     Indication: RHEUMATOID ARTHRITIS
     Dosage: 50 MG, WEEKLY
     Dates: start: 19980201
  2. ENBREL [Suspect]
     Dosage: 50 MG, QWK
  3. PREDNISONE [Concomitant]
     Dosage: UNK
  4. METHOTREXATE [Concomitant]
     Dosage: UNK

REACTIONS (16)
  - Rheumatoid lung [Recovered/Resolved]
  - Dyspnoea [Not Recovered/Not Resolved]
  - Pleural effusion [Unknown]
  - Meniscus injury [Recovered/Resolved]
  - Cough [Not Recovered/Not Resolved]
  - Arthritis [Recovered/Resolved]
  - Chronic obstructive pulmonary disease [Not Recovered/Not Resolved]
  - Eye pain [Recovered/Resolved]
  - Visual impairment [Recovered/Resolved]
  - Weight increased [Unknown]
  - Rheumatoid arthritis [Not Recovered/Not Resolved]
  - Cataract [Recovered/Resolved]
  - Drug ineffective [Not Recovered/Not Resolved]
  - Hypoacusis [Unknown]
  - Musculoskeletal stiffness [Unknown]
  - Herpes zoster [Recovered/Resolved]
